FAERS Safety Report 6776370-6 (Version None)
Quarter: 2010Q2

REPORT INFORMATION
  Report Type: 
  Country: None (occurrence: None)
  Receive Date: 20100615
  Receipt Date: 20100531
  Transmission Date: 20101027
  Serious: Yes (Life-Threatening, Hospitalization)
  Sender: FDA-Public Use
  Company Number: DSJ-2010-06061

PATIENT
  Age: 37 Year
  Sex: Female
  Weight: 53.4 kg

DRUGS (2)
  1. OLMESARTAN MEDOXOMIL [Suspect]
     Indication: HYPERTENSION
     Dosage: (40 MG, 1 IN 1 D), PER ORAL; (5 MG, 1 IN 3 D), PER ORAL
     Route: 048
     Dates: start: 20070101
  2. OLMESARTAN MEDOXOMIL [Suspect]
     Indication: HYPERTENSION
     Dosage: (40 MG, 1 IN 1 D), PER ORAL; (5 MG, 1 IN 3 D), PER ORAL
     Route: 048
     Dates: start: 20091023

REACTIONS (3)
  - DRUG EXPOSURE DURING PREGNANCY [None]
  - OLIGOHYDRAMNIOS [None]
  - PREMATURE LABOUR [None]
